FAERS Safety Report 14603774 (Version 2)
Quarter: 2018Q1

REPORT INFORMATION
  Report Type: Spontaneous
  Country: GR (occurrence: GR)
  Receive Date: 20180306
  Receipt Date: 20180321
  Transmission Date: 20180509
  Serious: Yes (Other)
  Sender: FDA-Public Use
  Company Number: GR-ASTELLAS-2018US010580

PATIENT
  Age: 63 Year
  Sex: Male

DRUGS (2)
  1. ELITYRAN                           /00726901/ [Concomitant]
     Indication: PRODUCT USED FOR UNKNOWN INDICATION
     Dosage: 11.25 MG, EVERY 3 MONTHS
     Route: 065
  2. XTANDI [Suspect]
     Active Substance: ENZALUTAMIDE
     Indication: HORMONE-REFRACTORY PROSTATE CANCER
     Dosage: 160 MG (4X40MG), ONCE DAILY
     Route: 048
     Dates: start: 20170123

REACTIONS (2)
  - Amnesia [Unknown]
  - Disturbance in attention [Unknown]
